FAERS Safety Report 6705669-4 (Version None)
Quarter: 2010Q2

REPORT INFORMATION
  Report Type: 
  Country: None (occurrence: None)
  Receive Date: 20100503
  Receipt Date: 20100422
  Transmission Date: 20101027
  Serious: Yes (Hospitalization, Other)
  Sender: FDA-Public Use
  Company Number: US-JNJFOC-20091204761

PATIENT
  Sex: Female

DRUGS (4)
  1. LEVAQUIN [Suspect]
     Indication: BRONCHITIS
     Route: 065
  2. LEVAQUIN [Suspect]
     Indication: VIRAL INFECTION
     Route: 065
  3. LEVAQUIN [Suspect]
     Indication: RESPIRATORY DISORDER
     Route: 065
  4. PREDNISONE [Suspect]
     Indication: BRONCHITIS
     Route: 065

REACTIONS (3)
  - CARPAL TUNNEL SYNDROME [None]
  - TENDON RUPTURE [None]
  - TENDONITIS [None]
